FAERS Safety Report 5110087-9 (Version None)
Quarter: 2006Q3

REPORT INFORMATION
  Report Type: 
  Country: None (occurrence: None)
  Receive Date: 20060919
  Receipt Date: 20060919
  Transmission Date: 20061208
  Serious: Yes (Hospitalization)
  Sender: FDA-Public Use
  Company Number: None

PATIENT
  Age: 52 Year
  Sex: Male
  Weight: 104 kg

DRUGS (12)
  1. SUTENT [Suspect]
     Indication: RENAL CELL CARCINOMA STAGE UNSPECIFIED
     Dosage: 50 MG DAILY PO
     Route: 048
     Dates: start: 20060706, end: 20060717
  2. GLIPIZIDE [Concomitant]
  3. LISINOPRIL [Concomitant]
  4. LOVASTATIN [Concomitant]
  5. TRAMADOL HCL [Concomitant]
  6. MAXZIDE [Concomitant]
  7. NORVASC [Concomitant]
  8. PROCRIT [Concomitant]
  9. FERROUS SULFATE TAB [Concomitant]
  10. CLINDAMYCIN [Concomitant]
  11. OXYCODONE HCL [Concomitant]
  12. MAGIC MOUTHWASH [Concomitant]

REACTIONS (4)
  - APHTHOUS STOMATITIS [None]
  - ORAL PAIN [None]
  - PALMAR-PLANTAR ERYTHRODYSAESTHESIA SYNDROME [None]
  - TONGUE ULCERATION [None]
